FAERS Safety Report 8592519-7 (Version None)
Quarter: 2012Q3

REPORT INFORMATION
  Report Type: 
  Country: None (occurrence: None)
  Receive Date: 20120814
  Receipt Date: 20120806
  Transmission Date: 20120928
  Serious: Yes (Hospitalization)
  Sender: FDA-Public Use
  Company Number: US-ABBOTT-12P-163-0965429-00

PATIENT
  Age: 54 Year
  Sex: Female

DRUGS (1)
  1. HUMIRA [Suspect]
     Indication: CROHN'S DISEASE

REACTIONS (8)
  - DEVICE MALFUNCTION [None]
  - INJECTION SITE URTICARIA [None]
  - CROHN'S DISEASE [None]
  - COLITIS [None]
  - DEHYDRATION [None]
  - ENTERITIS [None]
  - PAIN [None]
  - INCORRECT DOSE ADMINISTERED [None]
